FAERS Safety Report 7691098-6 (Version None)
Quarter: 2011Q3

REPORT INFORMATION
  Report Type: 
  Country: None (occurrence: None)
  Receive Date: 20110818
  Receipt Date: 20110808
  Transmission Date: 20111222
  Serious: Yes (Other)
  Sender: FDA-Public Use
  Company Number: FR-VERTEX PHARMACEUTICALS INC.-AE-2011-000146

PATIENT
  Sex: Female
  Weight: 103 kg

DRUGS (10)
  1. VX-950 [Suspect]
     Indication: HEPATITIS C
     Route: 048
     Dates: start: 20110314
  2. RIBAVIRIN [Concomitant]
     Indication: HEPATITIS C
     Route: 048
  3. CANDESARTAN CILEXETIL [Concomitant]
     Indication: HYPERTENSION
  4. NEXIUM [Concomitant]
     Indication: ABDOMINAL PAIN UPPER
  5. DEDROGYL [Concomitant]
  6. RIBAVIRIN [Concomitant]
     Route: 048
  7. PEGINTERFERON ALFA-2A [Concomitant]
     Indication: HEPATITIS C
     Route: 058
  8. PROPRANOLOL [Concomitant]
     Indication: PORTAL HYPERTENSION
  9. CITALOPRAM HYDROBROMIDE [Concomitant]
     Indication: DEPRESSION
  10. RIBAVIRIN [Concomitant]
     Route: 048

REACTIONS (2)
  - NEUTROPENIA [None]
  - ANAEMIA [None]
